FAERS Safety Report 13813791 (Version 2)
Quarter: 2018Q1

REPORT INFORMATION
  Report Type: Spontaneous
  Country: US (occurrence: US)
  Receive Date: 20170731
  Receipt Date: 20180207
  Transmission Date: 20180508
  Serious: No
  Sender: FDA-Public Use
  Company Number: US-PFIZER INC-2017326439

PATIENT
  Age: 46 Year
  Sex: Female
  Weight: 99.79 kg

DRUGS (5)
  1. METHOTREXATE SODIUM. [Suspect]
     Active Substance: METHOTREXATE SODIUM
     Dosage: 25MG/ML, WEEKLY
     Dates: start: 20160328, end: 201612
  2. METHOTREXATE SODIUM. [Suspect]
     Active Substance: METHOTREXATE SODIUM
     Indication: RHEUMATOID ARTHRITIS
     Dosage: 50MG/2ML ISOTONIC LIQUID, 25MG/ML, 25MG INJECTION ONCE A WEEK
     Dates: start: 2016, end: 201611
  3. HUMIRA [Concomitant]
     Active Substance: ADALIMUMAB
     Indication: RHEUMATOID ARTHRITIS
     Dosage: 40 MG, EVERY OTHER WEEK INJECTION
     Dates: start: 2012, end: 201706
  4. SULFASALAZINE. [Concomitant]
     Active Substance: SULFASALAZINE
     Dosage: 1500 MG, 2X/DAY
     Dates: start: 2013, end: 2017
  5. SULFASALAZINE. [Concomitant]
     Active Substance: SULFASALAZINE
     Indication: RHEUMATOID ARTHRITIS
     Dosage: 500MG TABLET, TAKES 3 TABLETS IN THE MORNING AND 3 TABLET IN THE EVENING
     Route: 048
     Dates: start: 2011

REACTIONS (4)
  - Drug ineffective [Unknown]
  - Gastrooesophageal reflux disease [Recovering/Resolving]
  - Condition aggravated [Recovering/Resolving]
  - Skin discolouration [Recovering/Resolving]

NARRATIVE: CASE EVENT DATE: 201611
